FAERS Safety Report 8522229-3 (Version None)
Quarter: 2012Q3

REPORT INFORMATION
  Report Type: 
  Country: None (occurrence: None)
  Receive Date: 20120709
  Receipt Date: 20120628
  Transmission Date: 20120928
  Serious: Yes (Hospitalization)
  Sender: FDA-Public Use
  Company Number: ACO_30942_2012

PATIENT

DRUGS (5)
  1. LYRICA [Concomitant]
  2. METOPROLOL SUCCINATE [Concomitant]
  3. AMPYRA [Suspect]
     Indication: PRODUCT USED FOR UNKNOWN INDICATION
     Dosage: 10 MG, BID
     Dates: start: 20110226
  4. BETASERON [Concomitant]
  5. NORVASC [Concomitant]

REACTIONS (1)
  - RESPIRATORY FAILURE [None]
